FAERS Safety Report 21624659 (Version 1)
Quarter: 2022Q4

REPORT INFORMATION
  Report Type: Spontaneous
  Country: RO (occurrence: RO)
  Receive Date: 20221121
  Receipt Date: 20221121
  Transmission Date: 20230113
  Serious: Yes (Other)
  Sender: FDA-Public Use
  Company Number: RO-SUN PHARMACEUTICAL INDUSTRIES LTD-2022RR-364532

PATIENT
  Age: 31 Year
  Sex: Female

DRUGS (11)
  1. MEROPENEM [Suspect]
     Active Substance: MEROPENEM
     Indication: COVID-19
     Dosage: 1000 MILLIGRAM
     Route: 042
  2. ASPIRIN [Suspect]
     Active Substance: ASPIRIN
     Indication: COVID-19
     Dosage: 100 MILLIGRAM
     Route: 048
  3. DEXAMETHASONE [Suspect]
     Active Substance: DEXAMETHASONE
     Indication: COVID-19
     Dosage: 16 MILLIGRAM
     Route: 042
  4. METRONIDAZOLE [Suspect]
     Active Substance: METRONIDAZOLE
     Indication: COVID-19
     Dosage: 500 MILLIGRAM, 3/DAY
     Route: 042
  5. REMDESIVIR [Suspect]
     Active Substance: REMDESIVIR
     Indication: COVID-19
     Dosage: 100 MILLIGRAM
     Route: 042
  6. ENOXAPARIN SODIUM [Suspect]
     Active Substance: ENOXAPARIN SODIUM
     Indication: COVID-19
     Dosage: 0.4 MILLILITER, DURING THE ENTIRE HOSPITALIZATION
     Route: 058
  7. LINEZOLID [Suspect]
     Active Substance: LINEZOLID
     Indication: COVID-19
     Dosage: 600 MILLIGRAM
     Route: 042
  8. AVIBACTAM SODIUM\CEFTAZIDIME [Suspect]
     Active Substance: AVIBACTAM SODIUM\CEFTAZIDIME
     Indication: Erythema
     Dosage: 2/0.5 G IV 3/DAY
     Route: 042
  9. AVIBACTAM SODIUM\CEFTAZIDIME [Suspect]
     Active Substance: AVIBACTAM SODIUM\CEFTAZIDIME
     Indication: Inflammation
  10. AVIBACTAM SODIUM\CEFTAZIDIME [Suspect]
     Active Substance: AVIBACTAM SODIUM\CEFTAZIDIME
     Indication: Leukocytosis
  11. COLISTIN [Suspect]
     Active Substance: COLISTIN
     Indication: COVID-19
     Dosage: 4.5 MIL IU 2/DAY
     Route: 065

REACTIONS (3)
  - Off label use [Unknown]
  - Exposure during pregnancy [Unknown]
  - Disease progression [Recovered/Resolved]
